FAERS Safety Report 12743671 (Version 1)
Quarter: 2016Q3

REPORT INFORMATION
  Report Type: Spontaneous
  Country: US (occurrence: US)
  Receive Date: 20160914
  Receipt Date: 20160914
  Transmission Date: 20161109
  Serious: Yes (Other)
  Sender: FDA-Public Use
  Company Number: US-BAYER-2016-175167

PATIENT
  Sex: Female

DRUGS (1)
  1. AVELOX [Suspect]
     Active Substance: MOXIFLOXACIN HYDROCHLORIDE
     Dosage: UNK
     Dates: start: 201011

REACTIONS (9)
  - Neuropathy peripheral [None]
  - Discomfort [None]
  - Pain [None]
  - Headache [None]
  - Visual impairment [None]
  - Asthenia [None]
  - Balance disorder [None]
  - Hypoaesthesia [None]
  - Paraesthesia [None]
